FAERS Safety Report 4459518-8 (Version None)
Quarter: 2004Q3

REPORT INFORMATION
  Report Type: 
  Country: None (occurrence: None)
  Receive Date: 20040910
  Receipt Date: 20040527
  Transmission Date: 20050211
  Serious: No
  Sender: FDA-Public Use
  Company Number: 2004216637US

PATIENT
  Age: 74 Year
  Sex: Male

DRUGS (5)
  1. BEXTRA [Suspect]
     Indication: BACK PAIN
     Dosage: 20 MG, QID, UNKNOWN
     Route: 065
  2. IRBESARTAN (IRBESARTAN) [Concomitant]
  3. ATENOLOL [Concomitant]
  4. PRAZOSIN GITS [Concomitant]
  5. VICODIN [Concomitant]

REACTIONS (2)
  - COUGH [None]
  - INCREASED UPPER AIRWAY SECRETION [None]
